FAERS Safety Report 7564642-7 (Version None)
Quarter: 2011Q2

REPORT INFORMATION
  Report Type: 
  Country: None (occurrence: None)
  Receive Date: 20110622
  Receipt Date: 20100825
  Transmission Date: 20111010
  Serious: Yes (Other)
  Sender: FDA-Public Use
  Company Number: US-MYLANLABS-2010S1013582

PATIENT
  Age: 53 Year
  Sex: Female

DRUGS (4)
  1. CLOZAPINE [Suspect]
     Route: 048
     Dates: start: 20100721, end: 20100804
  2. DEPAKOTE [Suspect]
     Dates: start: 20100620
  3. CLOZAPINE [Suspect]
     Indication: SCHIZOAFFECTIVE DISORDER
     Route: 048
     Dates: start: 20100721, end: 20100804
  4. SEROQUEL [Suspect]
     Dates: start: 20100626

REACTIONS (1)
  - GRANULOCYTOPENIA [None]
